FAERS Safety Report 22040433 (Version 1)
Quarter: 2023Q1

REPORT INFORMATION
  Report Type: Spontaneous
  Country: US (occurrence: None)
  Receive Date: 20230225
  Receipt Date: 20230225
  Transmission Date: 20230417
  Serious: Yes (Hospitalization)
  Sender: FDA-Public Use
  Company Number: None

PATIENT
  Age: 22 Year
  Sex: Male
  Weight: 72 kg

DRUGS (1)
  1. .DELTA.8-TETRAHYDROCANNABINOL\HERBALS [Suspect]
     Active Substance: .DELTA.8-TETRAHYDROCANNABINOL\HERBALS
     Indication: Stress
     Dates: start: 20230220, end: 20230222

REACTIONS (4)
  - Suicidal ideation [None]
  - Aggression [None]
  - Delusion [None]
  - Psychotic disorder [None]

NARRATIVE: CASE EVENT DATE: 20230222
